FAERS Safety Report 17500513 (Version 1)
Quarter: 2020Q1

REPORT INFORMATION
  Report Type: Report from Study
  Country: JP (occurrence: JP)
  Receive Date: 20200305
  Receipt Date: 20200305
  Transmission Date: 20200409
  Serious: Yes (Death, Other)
  Sender: FDA-Public Use
  Company Number: NVSJ2020JP002854

PATIENT
  Age: 75 Year
  Sex: Male

DRUGS (7)
  1. REVOLADE TAB [Suspect]
     Active Substance: ELTROMBOPAG
     Indication: APLASTIC ANAEMIA
     Dosage: 12.5 MG, UNK
     Route: 048
     Dates: start: 20181214, end: 20181217
  2. REVOLADE TAB [Suspect]
     Active Substance: ELTROMBOPAG
     Dosage: 25 MG
     Route: 048
     Dates: start: 20181218, end: 20190131
  3. NEORAL [Suspect]
     Active Substance: CYCLOSPORINE
     Indication: APLASTIC ANAEMIA
     Dosage: 100 MG
     Route: 048
     Dates: start: 20181018, end: 20181213
  4. CONCENTRATED RED CELLS [Concomitant]
     Active Substance: HUMAN RED BLOOD CELL
     Dosage: 400 ML, QMO
     Route: 041
     Dates: start: 20190208, end: 20190307
  5. CONCENTRATED RED CELLS [Concomitant]
     Active Substance: HUMAN RED BLOOD CELL
     Dosage: 400 ML, QMO
     Route: 041
     Dates: start: 20181214, end: 20190110
  6. NEORAL [Suspect]
     Active Substance: CYCLOSPORINE
     Dosage: 100 MG, UNK
     Route: 048
     Dates: start: 20181214, end: 20190316
  7. CONCENTRATED RED CELLS [Concomitant]
     Active Substance: HUMAN RED BLOOD CELL
     Indication: APLASTIC ANAEMIA
     Dosage: 400 ML, QMO
     Route: 041
     Dates: start: 20181116, end: 20181213

REACTIONS (5)
  - Aspiration [Unknown]
  - Platelet count decreased [Unknown]
  - Infection [Fatal]
  - Haemoglobin decreased [Unknown]
  - Condition aggravated [Fatal]

NARRATIVE: CASE EVENT DATE: 20190115
